FAERS Safety Report 12631693 (Version 2)
Quarter: 2016Q3

REPORT INFORMATION
  Report Type: Spontaneous
  Country: US (occurrence: US)
  Receive Date: 20160808
  Receipt Date: 20160808
  Transmission Date: 20161109
  Serious: No
  Sender: FDA-Public Use
  Company Number: US-BEH-2015055351

PATIENT
  Age: 72 Year
  Sex: Female
  Weight: 81 kg

DRUGS (20)
  1. LOSARTAN. [Concomitant]
     Active Substance: LOSARTAN
  2. NASACORT [Concomitant]
     Active Substance: TRIAMCINOLONE ACETONIDE
  3. VITAMIN B12 [Concomitant]
     Active Substance: CYANOCOBALAMIN
  4. METHYLPREDNISOLONE. [Concomitant]
     Active Substance: METHYLPREDNISOLONE
  5. TRAZODONE [Concomitant]
     Active Substance: TRAZODONE HYDROCHLORIDE
  6. SINGULAIR [Concomitant]
     Active Substance: MONTELUKAST SODIUM
  7. GABAPENTIN. [Concomitant]
     Active Substance: GABAPENTIN
  8. KEPPRA [Concomitant]
     Active Substance: LEVETIRACETAM
  9. ALL OTHER THERAPEUTIC PRODUCTS [Concomitant]
     Active Substance: UNSPECIFIED INGREDIENT
  10. HIZENTRA [Suspect]
     Active Substance: HUMAN IMMUNOGLOBULIN G
     Indication: IMMUNODEFICIENCY COMMON VARIABLE
     Dosage: STRENGTH FOR DOSAGE FORM: 4 GM/20 ML, START DATE ??-APR-2014
     Route: 058
  11. NEO/POLY/DEX EYE FROP [Concomitant]
  12. ATENOLOL. [Concomitant]
     Active Substance: ATENOLOL
  13. CALCIUM [Concomitant]
     Active Substance: CALCIUM
  14. VITAMIN C [Concomitant]
     Active Substance: ASCORBIC ACID
  15. ALBUTEROL. [Concomitant]
     Active Substance: ALBUTEROL
  16. DIPHENHYDRAMINE. [Concomitant]
     Active Substance: DIPHENHYDRAMINE
  17. EPIPEN [Concomitant]
     Active Substance: EPINEPHRINE
  18. VITAMIN D [Concomitant]
     Active Substance: CHOLECALCIFEROL
  19. FLORASTOR [Concomitant]
     Active Substance: SACCHAROMYCES CEREVISIAE
  20. COMPLETE MULTIVITAMIN [Concomitant]
     Active Substance: VITAMINS

REACTIONS (1)
  - Sinusitis [Unknown]

NARRATIVE: CASE EVENT DATE: 20150906
